FAERS Safety Report 25738303 (Version 5)
Quarter: 2025Q4

REPORT INFORMATION
  Report Type: Spontaneous
  Country: US (occurrence: US)
  Receive Date: 20250829
  Receipt Date: 20251230
  Transmission Date: 20260117
  Serious: Yes (Other)
  Sender: CSL BEHRING
  Company Number: US-BEH-2025216599

PATIENT
  Age: 50 Year
  Sex: Female
  Weight: 55.33 kg

DRUGS (10)
  1. HAEGARDA [Suspect]
     Active Substance: HUMAN C1-ESTERASE INHIBITOR
     Indication: Hereditary angioedema
     Dosage: 4000 IU, BIW
     Route: 058
     Dates: start: 202507
  2. HAEGARDA [Suspect]
     Active Substance: HUMAN C1-ESTERASE INHIBITOR
     Indication: Prophylaxis
     Dosage: 400 IU/KG AS ORDERED
     Route: 065
  3. HAEGARDA [Suspect]
     Active Substance: HUMAN C1-ESTERASE INHIBITOR
     Dosage: UNK
     Route: 065
     Dates: start: 20250726
  4. HAEGARDA [Suspect]
     Active Substance: HUMAN C1-ESTERASE INHIBITOR
     Dosage: UNK
     Route: 065
     Dates: start: 20250730
  5. HAEGARDA [Suspect]
     Active Substance: HUMAN C1-ESTERASE INHIBITOR
     Dosage: UNK
     Route: 065
     Dates: start: 20250802
  6. ANDEMBRY [Suspect]
     Active Substance: GARADACIMAB-GXII
     Indication: Hereditary angioedema
     Dosage: 200 MG, QMT
     Route: 058
     Dates: start: 202509
  7. ANDEMBRY [Suspect]
     Active Substance: GARADACIMAB-GXII
     Indication: Prophylaxis
  8. TAKHZYRO [Concomitant]
     Active Substance: LANADELUMAB-FLYO
     Dosage: PFS
  9. ICATIBANT ACETATE [Concomitant]
     Active Substance: ICATIBANT ACETATE
     Dosage: PFS
  10. HAEGARDA [Concomitant]
     Active Substance: HUMAN C1-ESTERASE INHIBITOR
     Route: 065

REACTIONS (16)
  - Hereditary angioedema [Recovered/Resolved]
  - Hereditary angioedema [Recovered/Resolved]
  - Hereditary angioedema [Recovered/Resolved]
  - Hereditary angioedema [Recovered/Resolved]
  - Hereditary angioedema [Unknown]
  - Hereditary angioedema [Unknown]
  - Hereditary angioedema [Unknown]
  - Hereditary angioedema [Unknown]
  - Hereditary angioedema [Unknown]
  - Injection site urticaria [Unknown]
  - Cough [Unknown]
  - Dysphonia [Unknown]
  - Therapy change [Unknown]
  - Drug hypersensitivity [Recovering/Resolving]
  - Injection site urticaria [Unknown]
  - Dysphonia [Unknown]

NARRATIVE: CASE EVENT DATE: 20250101
